FAERS Safety Report 6759931-X (Version None)
Quarter: 2010Q2

REPORT INFORMATION
  Report Type: 
  Country: None (occurrence: None)
  Receive Date: 20100608
  Receipt Date: 20100531
  Transmission Date: 20101027
  Serious: Yes (Hospitalization)
  Sender: FDA-Public Use
  Company Number: FR-WYE-G06201210

PATIENT
  Sex: Female

DRUGS (6)
  1. EFFEXOR XR [Suspect]
     Indication: DEPRESSION
     Route: 048
  2. LEVOTHYROXINE SODIUM [Concomitant]
     Indication: HYPOTHYROIDISM
     Route: 048
  3. ZOLPIDEM [Suspect]
     Indication: INSOMNIA
     Route: 048
  4. LEPTICUR [Concomitant]
     Indication: PARKINSONISM
     Route: 048
  5. TERALITHE [Suspect]
     Indication: BIPOLAR I DISORDER
     Dosage: 250 MG 3 TIMES PER DAY FROM AN UNKNOWN DATE TO DEC-2009, AND THEN 250 MG 2 TIMES PER DAY
     Route: 048
  6. LOXAPAC [Suspect]
     Indication: BIPOLAR I DISORDER
     Route: 048
     Dates: start: 20091001

REACTIONS (8)
  - ANTEROGRADE AMNESIA [None]
  - CEREBRAL CALCIFICATION [None]
  - CONFUSIONAL STATE [None]
  - DISORIENTATION [None]
  - HALLUCINATION [None]
  - LEUKOCYTOSIS [None]
  - OVERDOSE [None]
  - RENAL IMPAIRMENT [None]
